FAERS Safety Report 5274873-7 (Version None)
Quarter: 2007Q1

REPORT INFORMATION
  Report Type: 
  Country: None (occurrence: None)
  Receive Date: 20061208
  Receipt Date: 20060613
  Transmission Date: 20070707
  Serious: Yes (Hospitalization)
  Sender: FDA-Public Use
  Company Number: 2006UW09184

PATIENT
  Age: 70 Year
  Sex: Male

DRUGS (4)
  1. CRESTOR [Suspect]
     Dosage: 10 MG PO
     Route: 048
     Dates: start: 20060501, end: 20060507
  2. DICLOFENAC SODIUM [Concomitant]
  3. LISINOPRIL [Concomitant]
  4. PRILOSEC [Concomitant]

REACTIONS (1)
  - PANCREATITIS [None]
